FAERS Safety Report 9341455 (Version 1)
Quarter: 2013Q2

REPORT INFORMATION
  Report Type: Spontaneous
  Country: US (occurrence: US)
  Receive Date: 20130611
  Receipt Date: 20130611
  Transmission Date: 20140414
  Serious: Yes (Other)
  Sender: FDA-Public Use
  Company Number: US-ELI_LILLY_AND_COMPANY-US201306001721

PATIENT
  Age: 65 Year
  Sex: Female
  Weight: 87.08 kg

DRUGS (2)
  1. HUMALOG LISPRO [Suspect]
     Route: 058
  2. HUMALOG LISPRO [Suspect]
     Dosage: 12 U, SINGLE
     Dates: start: 20130603

REACTIONS (2)
  - Blindness [Not Recovered/Not Resolved]
  - Blood glucose increased [Unknown]
